APPROVED DRUG PRODUCT: PIPERACILLIN AND TAZOBACTAM
Active Ingredient: PIPERACILLIN SODIUM; TAZOBACTAM SODIUM
Strength: EQ 12GM BASE/VIAL;EQ 1.5GM BASE/VIAL
Dosage Form/Route: INJECTABLE;INJECTION
Application: A206204 | Product #001
Applicant: FRESENIUS KABI USA LLC
Approved: May 11, 2018 | RLD: No | RS: No | Type: DISCN